FAERS Safety Report 5841801-2 (Version None)
Quarter: 2008Q3

REPORT INFORMATION
  Report Type: 
  Country: None (occurrence: None)
  Receive Date: 20080812
  Receipt Date: 20080806
  Transmission Date: 20090109
  Serious: Yes (Hospitalization)
  Sender: FDA-Public Use
  Company Number: A0741360A

PATIENT
  Sex: Female

DRUGS (2)
  1. AVANDIA [Suspect]
     Route: 048
  2. CONCURRENT MEDICATIONS [Suspect]

REACTIONS (2)
  - LIVER DISORDER [None]
  - MYOCARDIAL INFARCTION [None]
